FAERS Safety Report 25447625 (Version 1)
Quarter: 2025Q2

REPORT INFORMATION
  Report Type: Spontaneous
  Country: US (occurrence: None)
  Receive Date: 20250617
  Receipt Date: 20250617
  Transmission Date: 20250717
  Serious: No
  Sender: FDA-CTU
  Company Number: None

PATIENT
  Age: 57 Year
  Sex: Female
  Weight: 87.75 kg

DRUGS (1)
  1. HUMIRA [Suspect]
     Active Substance: ADALIMUMAB
     Indication: Rheumatoid arthritis
     Dosage: 40 MG EVERY 2 WEEKS SUBCUTANEOUS
     Route: 058
     Dates: start: 20050417

REACTIONS (3)
  - Arthralgia [None]
  - Mobility decreased [None]
  - Drug ineffective [None]

NARRATIVE: CASE EVENT DATE: 20250301
